FAERS Safety Report 5482283-2 (Version None)
Quarter: 2007Q4

REPORT INFORMATION
  Report Type: 
  Country: None (occurrence: None)
  Receive Date: 20071011
  Receipt Date: 20071002
  Transmission Date: 20080405
  Serious: Yes (Hospitalization, Other)
  Sender: FDA-Public Use
  Company Number: US-AMGEN-QUU246080

PATIENT
  Sex: Male

DRUGS (1)
  1. ENBREL [Suspect]
     Indication: RHEUMATOID ARTHRITIS
     Route: 058
     Dates: start: 19980601

REACTIONS (7)
  - BRONCHITIS [None]
  - CARDIAC ARREST [None]
  - CARDIAC PACEMAKER INSERTION [None]
  - IMPLANTABLE DEFIBRILLATOR INSERTION [None]
  - MOUNTAIN SICKNESS ACUTE [None]
  - TUBERCULOSIS SKIN TEST POSITIVE [None]
  - TYPE 2 DIABETES MELLITUS [None]
